FAERS Safety Report 21055292 (Version 5)
Quarter: 2022Q3

REPORT INFORMATION
  Report Type: Other
  Country: CA (occurrence: None)
  Receive Date: 20220708
  Receipt Date: 20220817
  Transmission Date: 20221027
  Serious: No
  Sender: FDA-Public Use
  Company Number: CA-ROCHE-2778645

PATIENT
  Age: 36 Year
  Sex: Male

DRUGS (1)
  1. OCREVUS [Suspect]
     Active Substance: OCRELIZUMAB
     Indication: Relapsing-remitting multiple sclerosis
     Dosage: THEN 600 MG EVERY 6 MONTH
     Route: 042
     Dates: start: 20210209

REACTIONS (9)
  - Dysphonia [Recovered/Resolved]
  - Sluggishness [Unknown]
  - Balance disorder [Unknown]
  - Feeling abnormal [Unknown]
  - Oropharyngeal pain [Recovering/Resolving]
  - COVID-19 [Recovered/Resolved]
  - Tenderness [Unknown]
  - B-lymphocyte count increased [Not Recovered/Not Resolved]
  - Drug ineffective [Unknown]

NARRATIVE: CASE EVENT DATE: 20210223
